FAERS Safety Report 7416257-9 (Version None)
Quarter: 2011Q2

REPORT INFORMATION
  Report Type: 
  Country: None (occurrence: None)
  Receive Date: 20110414
  Receipt Date: 20110331
  Transmission Date: 20111010
  Serious: Yes (Other)
  Sender: FDA-Public Use
  Company Number: JP-CELGENEUS-087-21880-10112713

PATIENT
  Age: 59 Year
  Sex: Male
  Weight: 78.2 kg

DRUGS (9)
  1. LENADEX [Suspect]
     Dosage: 20 MILLIGRAM
     Route: 048
     Dates: start: 20101011, end: 20101014
  2. ASPIRIN [Concomitant]
     Indication: PROPHYLAXIS
     Dosage: 100 MILLIGRAM
     Route: 048
     Dates: start: 20100825, end: 20101012
  3. BAKTAR [Concomitant]
     Indication: PROPHYLAXIS
     Dosage: 1 TABLET
     Route: 048
     Dates: start: 20100825, end: 20101012
  4. TAKEPRON [Concomitant]
     Indication: HYPERTENSION
     Dosage: 15 MILLIGRAM
     Route: 048
     Dates: start: 20100825, end: 20101012
  5. REVLIMID [Suspect]
     Dosage: 10 MILLIGRAM
     Route: 048
     Dates: start: 20100922, end: 20101006
  6. LENADEX [Suspect]
     Indication: MULTIPLE MYELOMA
     Dosage: 20 MILLIGRAM
     Route: 048
     Dates: start: 20100825, end: 20100913
  7. REVLIMID [Suspect]
     Indication: MULTIPLE MYELOMA
     Dosage: 25 MILLIGRAM
     Route: 048
     Dates: start: 20100825, end: 20101007
  8. LENADEX [Suspect]
     Dosage: 20 MILLIGRAM
     Route: 048
     Dates: start: 20100922, end: 20101003
  9. AMLODIPINE [Concomitant]
     Indication: GASTRIC ULCER
     Dosage: 2.5 MILLIGRAM
     Route: 048
     Dates: start: 20100825, end: 20101012

REACTIONS (8)
  - TETANY [None]
  - RENAL DISORDER [None]
  - PARAESTHESIA [None]
  - PLATELET COUNT DECREASED [None]
  - MUSCULOSKELETAL STIFFNESS [None]
  - PYREXIA [None]
  - NEUTROPHIL COUNT DECREASED [None]
  - RENAL FAILURE [None]
